FAERS Safety Report 4955254-X (Version None)
Quarter: 2006Q1

REPORT INFORMATION
  Report Type: 
  Country: None (occurrence: None)
  Receive Date: 20060322
  Receipt Date: 20060309
  Transmission Date: 20060701
  Serious: Yes (Hospitalization)
  Sender: FDA-Public Use
  Company Number: 2006-BP-02650RO

PATIENT
  Age: 27 Year
  Sex: Male

DRUGS (2)
  1. METHADONE HCL [Suspect]
     Indication: DRUG ABUSER
     Dosage: 40 MG QD, PO
     Route: 048
  2. VENLAFAXINE HCL [Concomitant]

REACTIONS (10)
  - CONFUSIONAL STATE [None]
  - DISORIENTATION [None]
  - DYSPNOEA [None]
  - HEADACHE [None]
  - LETHARGY [None]
  - MIOSIS [None]
  - OPIATES POSITIVE [None]
  - SINUS BRADYCARDIA [None]
  - SUBARACHNOID HAEMORRHAGE [None]
  - XANTHOCHROMIA [None]
